FAERS Safety Report 5780452-5 (Version None)
Quarter: 2008Q2

REPORT INFORMATION
  Report Type: 
  Country: None (occurrence: None)
  Receive Date: 20080620
  Receipt Date: 20080613
  Transmission Date: 20081010
  Serious: Yes (Other)
  Sender: FDA-Public Use
  Company Number: DE-JNJFOC-20080602653

PATIENT
  Sex: Female
  Weight: 95 kg

DRUGS (3)
  1. RISPERDAL CONSTA [Suspect]
     Indication: PSYCHOTIC DISORDER
     Dosage: INITIATED 2 YEARS AGO.
     Route: 030
  2. LAMICTAL [Concomitant]
     Indication: DRUG THERAPY
     Route: 048
  3. AKINETON [Concomitant]
     Indication: DYSKINESIA
     Route: 048

REACTIONS (2)
  - GRANULOMA [None]
  - PHARMACEUTICAL PRODUCT COMPLAINT [None]
